FAERS Safety Report 18486485 (Version 3)
Quarter: 2020Q4

REPORT INFORMATION
  Report Type: Spontaneous
  Country: RO (occurrence: RO)
  Receive Date: 20201110
  Receipt Date: 20201125
  Transmission Date: 20210114
  Serious: Yes (Death, Hospitalization, Other)
  Sender: FDA-Public Use
  Company Number: NVSC2020RO301101

PATIENT
  Age: 46 Year
  Sex: Male

DRUGS (14)
  1. IMATINIB. [Suspect]
     Active Substance: IMATINIB MESYLATE
     Indication: CHRONIC MYELOID LEUKAEMIA
     Dosage: 800 MG, QD (FIRST CYCLE: FROM DAY 1 TO DAY 28
     Route: 037
  2. METHOTREXATE. [Suspect]
     Active Substance: METHOTREXATE
     Indication: CHRONIC MYELOID LEUKAEMIA
     Dosage: 1900 MG ON DAY 1
     Route: 037
  3. METHOTREXATE. [Suspect]
     Active Substance: METHOTREXATE
     Indication: PROPHYLAXIS
     Dosage: 15 MG, PROPHYLACTIC INTRATHECAL ADMINISTRATION OF CHEMOTHERAPY
     Route: 037
  4. CYTOSAR [Suspect]
     Active Substance: CYTARABINE
     Indication: CHRONIC MYELOID LEUKAEMIA
     Dosage: 5700 MG, BID ON DAY 2 AND 3
     Route: 037
  5. CYTOSAR [Suspect]
     Active Substance: CYTARABINE
     Indication: PROPHYLAXIS
     Dosage: 40 MG
     Route: 065
  6. HYDREA [Suspect]
     Active Substance: HYDROXYUREA
     Indication: PRODUCT USED FOR UNKNOWN INDICATION
     Dosage: 1000 MILLIGRAM, BID
     Route: 065
  7. DEXAMETHASONE. [Suspect]
     Active Substance: DEXAMETHASONE
     Indication: CHRONIC MYELOID LEUKAEMIA
     Dosage: 40 MG ON DAY 1-2, 8-9, 15-16 AND 22-23
     Route: 037
  8. DEXAMETHASONE. [Suspect]
     Active Substance: DEXAMETHASONE
     Indication: PROPHYLACTIC CHEMOTHERAPY
     Dosage: PROPHYLACTIC INTRATHECAL ADMINISTRATION OF CHEMOTHERAPY
     Route: 037
  9. DEXAMETHASONE. [Suspect]
     Active Substance: DEXAMETHASONE
     Indication: PROPHYLAXIS
  10. IMATINIB. [Suspect]
     Active Substance: IMATINIB MESYLATE
     Dosage: 800 MILLIGRAM, QD (SECOND CYCLE)
     Route: 065
  11. ALLOPURINOL. [Suspect]
     Active Substance: ALLOPURINOL
     Indication: BLOOD URIC ACID ABNORMAL
     Dosage: 100 MILLIGRAM, BID
     Route: 065
  12. VINCRISTINE [Suspect]
     Active Substance: VINCRISTINE
     Indication: CHRONIC MYELOID LEUKAEMIA
     Dosage: 2 MG ON DAY 1,8,15 AND 22
     Route: 037
  13. CALCIUM FOLINATE [Concomitant]
     Active Substance: LEUCOVORIN CALCIUM
     Indication: PRODUCT USED FOR UNKNOWN INDICATION
     Dosage: UNK
     Route: 065
  14. CYTOSAR [Suspect]
     Active Substance: CYTARABINE
     Indication: PROPHYLACTIC CHEMOTHERAPY
     Dosage: PROPHYLACTIC INTRATHECAL ADMINISTRATION OF CHEMOTHERAPY (CYTOSAR 40 MG) WAS DONE ON DAY 15
     Route: 037

REACTIONS (10)
  - Acinetobacter sepsis [Fatal]
  - Sepsis [Fatal]
  - Aplasia [Recovered/Resolved]
  - Pyrexia [Unknown]
  - Product use in unapproved indication [Unknown]
  - Drug ineffective [Fatal]
  - Drug resistance [Fatal]
  - Multiple-drug resistance [Fatal]
  - Off label use [Fatal]
  - Condition aggravated [Unknown]
